FAERS Safety Report 9503057 (Version 1)
Quarter: 2013Q1

REPORT INFORMATION
  Report Type: Spontaneous
  Country: US (occurrence: None)
  Receive Date: 20130107
  Receipt Date: 20130107
  Transmission Date: 20140127
  Serious: No
  Sender: FDA-Public Use
  Company Number: PHEH2012US019775

PATIENT
  Age: 74 Year
  Sex: Female
  Weight: 98 kg

DRUGS (1)
  1. GILENYA [Suspect]
     Indication: MULTIPLE SCLEROSIS
     Route: 048
     Dates: start: 20120912, end: 20121004

REACTIONS (6)
  - Sleep disorder [None]
  - Insomnia [None]
  - Hallucination, visual [None]
  - Oedema peripheral [None]
  - Decreased appetite [None]
  - Weight decreased [None]
